FAERS Safety Report 6243052-9 (Version None)
Quarter: 2009Q2

REPORT INFORMATION
  Report Type: 
  Country: None (occurrence: None)
  Receive Date: 20090624
  Receipt Date: 20090612
  Transmission Date: 20091009
  Serious: Yes (Hospitalization)
  Sender: FDA-Public Use
  Company Number: DE-ELI_LILLY_AND_COMPANY-DE200906002918

PATIENT
  Age: 60 Year
  Sex: Male

DRUGS (7)
  1. CYMBALTA [Suspect]
     Indication: DEPRESSION
     Dosage: 30 MG, DAILY (1/D)
     Route: 048
  2. AKINETON /00079501/ [Concomitant]
     Dosage: 24 MG, DAILY (1/D)
     Dates: start: 20080101, end: 20090402
  3. AKINETON /00079501/ [Concomitant]
     Dosage: 16 MG, DAILY (1/D)
     Dates: start: 20090403, end: 20090406
  4. AKINETON /00079501/ [Concomitant]
     Dosage: 8 MG, DAILY (1/D)
     Dates: start: 20090407, end: 20090408
  5. SEROQUEL [Concomitant]
     Dosage: 400 MG, DAILY (1/D)
  6. TAVOR [Concomitant]
     Dosage: 1.25 MG, DAILY (1/D)
     Dates: end: 20090414
  7. TAVOR [Concomitant]
     Dosage: 1 MG, DAILY (1/D)
     Dates: start: 20090415

REACTIONS (1)
  - AKATHISIA [None]
